FAERS Safety Report 14262771 (Version 10)
Quarter: 2018Q3

REPORT INFORMATION
  Report Type: Spontaneous
  Country: CZ (occurrence: CZ)
  Receive Date: 20171208
  Receipt Date: 20180704
  Transmission Date: 20181010
  Serious: Yes (Life-Threatening, Hospitalization, Other)
  Sender: FDA-Public Use
  Company Number: CZ-AUROBINDO-AUR-APL-2017-44242

PATIENT
  Age: 82 Year
  Sex: Female

DRUGS (164)
  1. PARACETAMOL [Suspect]
     Active Substance: ACETAMINOPHEN
     Indication: ANALGESIC THERAPY
     Dosage: ()
     Route: 065
  2. LEVETIRACETAM. [Suspect]
     Active Substance: LEVETIRACETAM
     Indication: GENERALISED TONIC-CLONIC SEIZURE
     Dosage: 40 MG/KG, UNK
     Route: 042
  3. METAMIZOLE [Suspect]
     Active Substance: METAMIZOLE
     Indication: PAIN
     Dosage: ()
     Route: 048
  4. PHENYTOIN. [Suspect]
     Active Substance: PHENYTOIN
     Indication: PARTIAL SEIZURES
     Dosage: ()
  5. PROPOFOL. [Suspect]
     Active Substance: PROPOFOL
     Indication: GENERALISED TONIC-CLONIC SEIZURE
  6. DIAZEPAM. [Suspect]
     Active Substance: DIAZEPAM
     Indication: SEIZURE
     Dosage: ()
  7. MILURIT [Suspect]
     Active Substance: ALLOPURINOL
     Indication: PRODUCT USED FOR UNKNOWN INDICATION
     Route: 065
  8. LOKREN [Concomitant]
     Active Substance: BETAXOLOL HYDROCHLORIDE
     Dosage: ()
     Route: 065
  9. LOKREN [Concomitant]
     Active Substance: BETAXOLOL HYDROCHLORIDE
     Dosage: ()
     Route: 065
  10. GLURENORM [Concomitant]
     Active Substance: GLIQUIDONE
     Indication: PRODUCT USED FOR UNKNOWN INDICATION
     Route: 065
  11. VASILIP [Concomitant]
     Active Substance: SIMVASTATIN
     Indication: PRODUCT USED FOR UNKNOWN INDICATION
     Route: 065
  12. VASILIP [Concomitant]
     Active Substance: SIMVASTATIN
     Dosage: ()
  13. CYNT                               /00985301/ [Concomitant]
     Active Substance: MOXONIDINE
     Dosage: UNK ()
  14. TRITACE [Concomitant]
     Active Substance: RAMIPRIL
     Dosage: ()
  15. TRITACE [Concomitant]
     Active Substance: RAMIPRIL
     Dosage: ()
  16. TRITACE [Concomitant]
     Active Substance: RAMIPRIL
     Dosage: UNK ()
     Route: 065
  17. TRITACE [Concomitant]
     Active Substance: RAMIPRIL
     Dosage: ()
     Route: 065
  18. KAPIDIN [Concomitant]
     Active Substance: LERCANIDIPINE HYDROCHLORIDE
     Dosage: UNK ()
  19. KAPIDIN [Concomitant]
     Active Substance: LERCANIDIPINE HYDROCHLORIDE
     Dosage: ()
     Route: 065
  20. EUTHYROX [Concomitant]
     Active Substance: LEVOTHYROXINE SODIUM
     Dosage: ()
  21. EUTHYROX [Concomitant]
     Active Substance: LEVOTHYROXINE SODIUM
     Dosage: UNK ()
     Route: 065
  22. EUTHYROX [Concomitant]
     Active Substance: LEVOTHYROXINE SODIUM
     Dosage: ()
     Route: 065
  23. GODASAL [Concomitant]
     Active Substance: ASPIRIN\GLYCINE
     Indication: PRODUCT USED FOR UNKNOWN INDICATION
     Route: 065
  24. GODASAL [Concomitant]
     Active Substance: ASPIRIN\GLYCINE
     Dosage: ()
  25. GODASAL [Concomitant]
     Active Substance: ASPIRIN\GLYCINE
     Dosage: ()
  26. GODASAL [Concomitant]
     Active Substance: ASPIRIN\GLYCINE
     Dosage: ()
     Route: 065
  27. PARACETAMOL [Suspect]
     Active Substance: ACETAMINOPHEN
     Indication: PAIN
  28. PHENYTOIN. [Suspect]
     Active Substance: PHENYTOIN
     Dosage: 20 MG/KG, UNK
     Route: 065
  29. LISALGIL [Suspect]
     Active Substance: METAMIZOLE SODIUM
     Indication: PAIN
     Dosage: UNK ()
     Route: 065
  30. PROPOFOL. [Suspect]
     Active Substance: PROPOFOL
     Indication: CLONIC CONVULSION
  31. DIAZEPAM. [Suspect]
     Active Substance: DIAZEPAM
     Indication: PRODUCT USED FOR UNKNOWN INDICATION
     Dosage: ()
  32. LOKREN [Concomitant]
     Active Substance: BETAXOLOL HYDROCHLORIDE
     Dosage: UNK ()
     Route: 048
  33. LOKREN [Concomitant]
     Active Substance: BETAXOLOL HYDROCHLORIDE
     Dosage: ()
     Route: 065
  34. GLURENORM [Concomitant]
     Active Substance: GLIQUIDONE
     Dosage: ()
     Route: 065
  35. GLURENORM [Concomitant]
     Active Substance: GLIQUIDONE
     Dosage: ()
  36. VASILIP [Concomitant]
     Active Substance: SIMVASTATIN
     Dosage: ()
  37. VASILIP [Concomitant]
     Active Substance: SIMVASTATIN
     Dosage: ()
  38. VASILIP [Concomitant]
     Active Substance: SIMVASTATIN
     Dosage: UNK ()
  39. VASILIP [Concomitant]
     Active Substance: SIMVASTATIN
     Dosage: ()
  40. VASILIP [Concomitant]
     Active Substance: SIMVASTATIN
     Dosage: ()
     Route: 065
  41. TRITACE [Concomitant]
     Active Substance: RAMIPRIL
     Dosage: UNK ()
     Route: 048
  42. KAPIDIN [Concomitant]
     Active Substance: LERCANIDIPINE HYDROCHLORIDE
     Dosage: ()
  43. KAPIDIN [Concomitant]
     Active Substance: LERCANIDIPINE HYDROCHLORIDE
     Dosage: ()
     Route: 065
  44. EUTHYROX [Concomitant]
     Active Substance: LEVOTHYROXINE SODIUM
     Indication: PRODUCT USED FOR UNKNOWN INDICATION
     Route: 065
  45. GODASAL [Concomitant]
     Active Substance: ASPIRIN\GLYCINE
     Dosage: ()
     Route: 065
  46. GODASAL [Concomitant]
     Active Substance: ASPIRIN\GLYCINE
     Dosage: ()
     Route: 065
  47. LEVETIRACETAM. [Suspect]
     Active Substance: LEVETIRACETAM
     Indication: PARTIAL SEIZURES
     Dosage: 3000 MG, UNK
     Route: 065
  48. FLUCONAZOLE. [Suspect]
     Active Substance: FLUCONAZOLE
     Indication: PNEUMONIA
  49. IBUPROFEN. [Suspect]
     Active Substance: IBUPROFEN
     Indication: PAIN
     Dosage: UNK
     Route: 048
  50. PHENYTOIN. [Suspect]
     Active Substance: PHENYTOIN
     Indication: GENERALISED TONIC-CLONIC SEIZURE
     Dosage: ()
  51. PHENYTOIN. [Suspect]
     Active Substance: PHENYTOIN
     Indication: STATUS EPILEPTICUS
     Dosage: 20 MG/KILOGRAM
     Route: 042
  52. DIAZEPAM. [Suspect]
     Active Substance: DIAZEPAM
     Indication: HYPERTENSION
     Dosage: ()
     Route: 042
  53. DIAZEPAM. [Suspect]
     Active Substance: DIAZEPAM
     Dosage: ()
  54. LOKREN [Concomitant]
     Active Substance: BETAXOLOL HYDROCHLORIDE
     Dosage: ()
  55. LOKREN [Concomitant]
     Active Substance: BETAXOLOL HYDROCHLORIDE
     Dosage: ()
     Route: 065
  56. LOKREN [Concomitant]
     Active Substance: BETAXOLOL HYDROCHLORIDE
     Dosage: ()
     Route: 065
  57. GLURENORM [Concomitant]
     Active Substance: GLIQUIDONE
     Dosage: ()
  58. GLURENORM [Concomitant]
     Active Substance: GLIQUIDONE
     Dosage: ()
     Route: 065
  59. VASILIP [Concomitant]
     Active Substance: SIMVASTATIN
     Dosage: ()
     Route: 065
  60. VASILIP [Concomitant]
     Active Substance: SIMVASTATIN
     Dosage: ()
     Route: 065
  61. TRITACE [Concomitant]
     Active Substance: RAMIPRIL
     Dosage: UNK ()
     Route: 065
  62. TRITACE [Concomitant]
     Active Substance: RAMIPRIL
     Dosage: ()
     Route: 065
  63. TRITACE [Concomitant]
     Active Substance: RAMIPRIL
     Dosage: ()
     Route: 065
  64. TRITACE [Concomitant]
     Active Substance: RAMIPRIL
     Dosage: ()
     Route: 065
  65. EUTHYROX [Concomitant]
     Active Substance: LEVOTHYROXINE SODIUM
     Dosage: UNK ()
     Route: 065
  66. EUTHYROX [Concomitant]
     Active Substance: LEVOTHYROXINE SODIUM
     Dosage: ()
     Route: 065
  67. GODASAL [Concomitant]
     Active Substance: ASPIRIN\GLYCINE
     Dosage: ()
  68. GODASAL [Concomitant]
     Active Substance: ASPIRIN\GLYCINE
     Dosage: ()
  69. GODASAL [Concomitant]
     Active Substance: ASPIRIN\GLYCINE
     Dosage: ()
     Route: 065
  70. CEFTRIAXON [Suspect]
     Active Substance: CEFTRIAXONE
     Indication: PNEUMONIA
     Route: 065
  71. PHENYTOIN. [Suspect]
     Active Substance: PHENYTOIN
     Indication: SEIZURE
     Dosage: 20 MG/KILOGRAM
     Route: 042
  72. DIAZEPAM. [Suspect]
     Active Substance: DIAZEPAM
     Indication: GENERALISED TONIC-CLONIC SEIZURE
     Dosage: UNK
     Route: 042
  73. DIAZEPAM. [Suspect]
     Active Substance: DIAZEPAM
     Dosage: ()
  74. LOKREN [Concomitant]
     Active Substance: BETAXOLOL HYDROCHLORIDE
     Dosage: ()
  75. VASILIP [Concomitant]
     Active Substance: SIMVASTATIN
     Dosage: ()
  76. VASILIP [Concomitant]
     Active Substance: SIMVASTATIN
     Route: 065
  77. VASILIP [Concomitant]
     Active Substance: SIMVASTATIN
     Dosage: ()
  78. VASILIP [Concomitant]
     Active Substance: SIMVASTATIN
     Dosage: ()
     Route: 065
  79. TRITACE [Concomitant]
     Active Substance: RAMIPRIL
     Indication: HYPERTENSION
     Route: 065
  80. TRITACE [Concomitant]
     Active Substance: RAMIPRIL
     Dosage: ()
  81. TRITACE [Concomitant]
     Active Substance: RAMIPRIL
     Dosage: ()
  82. TRITACE [Concomitant]
     Active Substance: RAMIPRIL
     Dosage: ()
     Route: 065
  83. KAPIDIN [Concomitant]
     Active Substance: LERCANIDIPINE HYDROCHLORIDE
     Dosage: ()
  84. KAPIDIN [Concomitant]
     Active Substance: LERCANIDIPINE HYDROCHLORIDE
     Dosage: ()
     Route: 065
  85. EUTHYROX [Concomitant]
     Active Substance: LEVOTHYROXINE SODIUM
     Dosage: ()
  86. GODASAL [Concomitant]
     Active Substance: ASPIRIN\GLYCINE
     Dosage: UNK ()
  87. GLYCINE. [Concomitant]
     Active Substance: GLYCINE
     Indication: PRODUCT USED FOR UNKNOWN INDICATION
     Dosage: ()
     Route: 065
  88. VALPROATE [Suspect]
     Active Substance: VALPROIC ACID
     Indication: GENERALISED TONIC-CLONIC SEIZURE
  89. IBUPROFEN. [Suspect]
     Active Substance: IBUPROFEN
     Indication: ANALGESIC THERAPY
     Dosage: ()
     Route: 065
  90. AMOXICILLIN. [Suspect]
     Active Substance: AMOXICILLIN
     Indication: PNEUMONIA
     Dosage: ()
     Route: 048
  91. PROPOFOL. [Suspect]
     Active Substance: PROPOFOL
     Indication: EPILEPSY
  92. MILURIT [Suspect]
     Active Substance: ALLOPURINOL
     Dosage: UNK ()
     Route: 065
  93. LOKREN [Concomitant]
     Active Substance: BETAXOLOL HYDROCHLORIDE
     Dosage: UNK ()
  94. LOKREN [Concomitant]
     Active Substance: BETAXOLOL HYDROCHLORIDE
     Dosage: ()
     Route: 065
  95. GLURENORM [Concomitant]
     Active Substance: GLIQUIDONE
     Dosage: ()
     Route: 065
  96. VASILIP [Concomitant]
     Active Substance: SIMVASTATIN
     Dosage: ()
     Route: 065
  97. VASILIP [Concomitant]
     Active Substance: SIMVASTATIN
     Dosage: ()
     Route: 065
  98. CYNT                               /00985301/ [Concomitant]
     Active Substance: MOXONIDINE
     Dosage: UNK ()
  99. KAPIDIN [Concomitant]
     Active Substance: LERCANIDIPINE HYDROCHLORIDE
     Dosage: ()
  100. EUTHYROX [Concomitant]
     Active Substance: LEVOTHYROXINE SODIUM
     Dosage: ()
     Route: 065
  101. EUTHYROX [Concomitant]
     Active Substance: LEVOTHYROXINE SODIUM
     Dosage: ()
     Route: 065
  102. GODASAL [Concomitant]
     Active Substance: ASPIRIN\GLYCINE
     Dosage: UNK ()
     Route: 065
  103. GODASAL [Concomitant]
     Active Substance: ASPIRIN\GLYCINE
     Dosage: ()
  104. GODASAL [Concomitant]
     Active Substance: ASPIRIN\GLYCINE
     Dosage: ()
     Route: 065
  105. GODASAL [Concomitant]
     Active Substance: ASPIRIN\GLYCINE
     Dosage: ()
     Route: 065
  106. GLIQUIDONA [Concomitant]
     Indication: PRODUCT USED FOR UNKNOWN INDICATION
     Dosage: UNK ()
     Route: 065
  107. GLYCINE. [Concomitant]
     Active Substance: GLYCINE
     Dosage: ()
     Route: 065
  108. GLYCINE. [Concomitant]
     Active Substance: GLYCINE
     Dosage: ()
     Route: 065
  109. FLUCONAZOLE. [Suspect]
     Active Substance: FLUCONAZOLE
     Indication: ANTIFUNGAL TREATMENT
     Dosage: UNK
     Route: 048
  110. VALPROATE [Suspect]
     Active Substance: VALPROIC ACID
     Indication: EPILEPSY
     Dosage: 30 MG/KG, UNK
     Route: 065
  111. VALPROATE [Suspect]
     Active Substance: VALPROIC ACID
     Indication: SEIZURE
  112. DIAZEPAM. [Suspect]
     Active Substance: DIAZEPAM
     Dosage: ()
     Route: 042
  113. LOKREN [Concomitant]
     Active Substance: BETAXOLOL HYDROCHLORIDE
     Dosage: UNK ()
     Route: 065
  114. LOKREN [Concomitant]
     Active Substance: BETAXOLOL HYDROCHLORIDE
     Dosage: ()
     Route: 065
  115. GLURENORM [Concomitant]
     Active Substance: GLIQUIDONE
     Dosage: ()
  116. GLURENORM [Concomitant]
     Active Substance: GLIQUIDONE
     Dosage: ()
  117. TRITACE [Concomitant]
     Active Substance: RAMIPRIL
     Dosage: ()
  118. TRITACE [Concomitant]
     Active Substance: RAMIPRIL
     Dosage: ()
     Route: 065
  119. KAPIDIN [Concomitant]
     Active Substance: LERCANIDIPINE HYDROCHLORIDE
     Indication: PRODUCT USED FOR UNKNOWN INDICATION
     Dosage: ()
  120. KAPIDIN [Concomitant]
     Active Substance: LERCANIDIPINE HYDROCHLORIDE
     Dosage: UNK ()
     Route: 048
  121. EUTHYROX [Concomitant]
     Active Substance: LEVOTHYROXINE SODIUM
     Dosage: UNK ()
     Route: 065
  122. EUTHYROX [Concomitant]
     Active Substance: LEVOTHYROXINE SODIUM
     Dosage: ()
     Route: 065
  123. GODASAL [Concomitant]
     Active Substance: ASPIRIN\GLYCINE
     Dosage: UNK ()
  124. GLYCINE. [Concomitant]
     Active Substance: GLYCINE
     Dosage: UNK ()
     Route: 065
  125. GLYCINE. [Concomitant]
     Active Substance: GLYCINE
     Dosage: ()
     Route: 065
  126. PROPOFOL. [Suspect]
     Active Substance: PROPOFOL
     Indication: SEIZURE
     Dosage: UNK ()
     Route: 065
  127. DIAZEPAM. [Suspect]
     Active Substance: DIAZEPAM
     Dosage: ()
  128. DIAZEPAM. [Suspect]
     Active Substance: DIAZEPAM
     Dosage: ()
     Route: 042
  129. GLURENORM [Concomitant]
     Active Substance: GLIQUIDONE
     Dosage: UNK ()
  130. GLURENORM [Concomitant]
     Active Substance: GLIQUIDONE
     Dosage: ()
     Route: 065
  131. VASILIP [Concomitant]
     Active Substance: SIMVASTATIN
     Dosage: ()
  132. VASILIP [Concomitant]
     Active Substance: SIMVASTATIN
     Dosage: ()
     Route: 065
  133. CYNT                               /00985301/ [Concomitant]
     Active Substance: MOXONIDINE
     Indication: PRODUCT USED FOR UNKNOWN INDICATION
     Route: 065
  134. TRITACE [Concomitant]
     Active Substance: RAMIPRIL
     Indication: PRODUCT USED FOR UNKNOWN INDICATION
     Dosage: ()
  135. TRITACE [Concomitant]
     Active Substance: RAMIPRIL
     Dosage: ()
     Route: 065
  136. KAPIDIN [Concomitant]
     Active Substance: LERCANIDIPINE HYDROCHLORIDE
     Indication: HYPERTENSION
     Route: 065
  137. KAPIDIN [Concomitant]
     Active Substance: LERCANIDIPINE HYDROCHLORIDE
     Route: 065
  138. KAPIDIN [Concomitant]
     Active Substance: LERCANIDIPINE HYDROCHLORIDE
     Dosage: ()
  139. KAPIDIN [Concomitant]
     Active Substance: LERCANIDIPINE HYDROCHLORIDE
     Dosage: ()
  140. KAPIDIN [Concomitant]
     Active Substance: LERCANIDIPINE HYDROCHLORIDE
     Dosage: UNK ()
  141. KAPIDIN [Concomitant]
     Active Substance: LERCANIDIPINE HYDROCHLORIDE
     Dosage: ()
  142. KAPIDIN [Concomitant]
     Active Substance: LERCANIDIPINE HYDROCHLORIDE
     Dosage: ()
     Route: 065
  143. EUTHYROX [Concomitant]
     Active Substance: LEVOTHYROXINE SODIUM
     Dosage: ()
  144. EUTHYROX [Concomitant]
     Active Substance: LEVOTHYROXINE SODIUM
     Dosage: ()
  145. EUTHYROX [Concomitant]
     Active Substance: LEVOTHYROXINE SODIUM
     Dosage: ()
     Route: 065
  146. EUTHYROX [Concomitant]
     Active Substance: LEVOTHYROXINE SODIUM
     Dosage: ()
     Route: 065
  147. GODASAL [Concomitant]
     Active Substance: ASPIRIN\GLYCINE
     Route: 065
  148. GLYCINE. [Concomitant]
     Active Substance: GLYCINE
     Dosage: ()
     Route: 065
  149. VALPROATE [Suspect]
     Active Substance: VALPROIC ACID
     Indication: PARTIAL SEIZURES
  150. DIAZEPAM. [Suspect]
     Active Substance: DIAZEPAM
     Indication: PARTIAL SEIZURES
     Dosage: ()
  151. LOKREN [Concomitant]
     Active Substance: BETAXOLOL HYDROCHLORIDE
     Indication: PRODUCT USED FOR UNKNOWN INDICATION
     Route: 065
  152. GLURENORM [Concomitant]
     Active Substance: GLIQUIDONE
     Dosage: ()
  153. GLURENORM [Concomitant]
     Active Substance: GLIQUIDONE
     Dosage: ()
     Route: 065
  154. VASILIP [Concomitant]
     Active Substance: SIMVASTATIN
     Dosage: UNK ()
  155. VASILIP [Concomitant]
     Active Substance: SIMVASTATIN
     Dosage: UNK ()
     Route: 065
  156. VASILIP [Concomitant]
     Active Substance: SIMVASTATIN
     Dosage: UNK ()
     Route: 048
  157. TRITACE [Concomitant]
     Active Substance: RAMIPRIL
     Dosage: UNK ()
     Route: 065
  158. TRITACE [Concomitant]
     Active Substance: RAMIPRIL
     Dosage: ()
     Route: 065
  159. KAPIDIN [Concomitant]
     Active Substance: LERCANIDIPINE HYDROCHLORIDE
     Dosage: UNK ()
     Route: 065
  160. KAPIDIN [Concomitant]
     Active Substance: LERCANIDIPINE HYDROCHLORIDE
     Dosage: ()
     Route: 065
  161. KAPIDIN [Concomitant]
     Active Substance: LERCANIDIPINE HYDROCHLORIDE
     Dosage: ()
     Route: 065
  162. KAPIDIN [Concomitant]
     Active Substance: LERCANIDIPINE HYDROCHLORIDE
     Dosage: ()
     Route: 065
  163. EUTHYROX [Concomitant]
     Active Substance: LEVOTHYROXINE SODIUM
     Dosage: ()
     Route: 065
  164. GODASAL [Concomitant]
     Active Substance: ASPIRIN\GLYCINE
     Dosage: ()
     Route: 065

REACTIONS (8)
  - Depressed level of consciousness [Recovering/Resolving]
  - Drug ineffective [Unknown]
  - Rash [Unknown]
  - Sopor [Recovering/Resolving]
  - Status epilepticus [Recovering/Resolving]
  - Pneumonia [Recovering/Resolving]
  - Stevens-Johnson syndrome [Recovered/Resolved with Sequelae]
  - Laceration [Unknown]
